FAERS Safety Report 7305174-0 (Version None)
Quarter: 2011Q1

REPORT INFORMATION
  Report Type: 
  Country: None (occurrence: None)
  Receive Date: 20110222
  Receipt Date: 20110215
  Transmission Date: 20110831
  Serious: Yes (Hospitalization)
  Sender: FDA-Public Use
  Company Number: US-ELI_LILLY_AND_COMPANY-US201102004061

PATIENT
  Sex: Male

DRUGS (10)
  1. GEMCITABINE HYDROCHLORIDE [Suspect]
     Indication: TRANSITIONAL CELL CARCINOMA
     Dosage: 1680 MG, OTHER
     Dates: start: 20110110, end: 20110131
  2. ENALAPRIL MALEATE [Concomitant]
     Dosage: 10 MG, UNK
     Route: 048
  3. SIMVASTATIN [Concomitant]
     Dosage: 40 MG, UNK
     Route: 048
  4. VITAMIN D [Concomitant]
     Dosage: 1000 UT
     Route: 048
  5. FLAXSEED OIL [Concomitant]
     Dosage: 1300 MG, UNK
     Route: 048
  6. CARBOPLATIN [Suspect]
     Indication: TRANSITIONAL CELL CARCINOMA
     Dosage: 585 MG, OTHER
     Dates: start: 20110110, end: 20110131
  7. GLUCOTROL [Concomitant]
     Dosage: 5 MG, UNK
     Route: 048
  8. LECITHIN [Concomitant]
     Dosage: 400 MG, UNK
     Route: 048
  9. MULTI-VITAMINS [Concomitant]
     Route: 048
  10. PACLITAXEL [Suspect]
     Indication: TRANSITIONAL CELL CARCINOMA
     Dosage: 462 MG, OTHER
     Dates: start: 20110110, end: 20110131

REACTIONS (1)
  - SYNCOPE [None]
